FAERS Safety Report 21372925 (Version 1)
Quarter: 2022Q3

REPORT INFORMATION
  Report Type: Report from Study
  Country: US (occurrence: US)
  Receive Date: 20220924
  Receipt Date: 20220924
  Transmission Date: 20221027
  Serious: Yes (Other)
  Sender: FDA-Public Use
  Company Number: US-ABBVIE-22K-163-4490865-00

PATIENT
  Age: 70 Year
  Sex: Female
  Weight: 60.327 kg

DRUGS (9)
  1. HUMIRA [Suspect]
     Active Substance: ADALIMUMAB
     Indication: Rheumatoid arthritis
     Dosage: CITRATE FREE
     Route: 058
     Dates: start: 20210811, end: 20220608
  2. Covid 19 Vaccine [Concomitant]
     Indication: COVID-19 immunisation
     Dosage: FIRST DOSE, ONE IN ONCE
     Route: 030
     Dates: start: 20210127, end: 20210127
  3. Covid 19 Vaccine [Concomitant]
     Indication: COVID-19 immunisation
     Dosage: SECOND DOSE, ONE IN ONCE
     Route: 030
     Dates: start: 20210224, end: 20210224
  4. Covid 19 Vaccine [Concomitant]
     Indication: COVID-19 immunisation
     Dosage: THIRD DOSE, ONE IN ONCE
     Route: 030
     Dates: start: 20211110, end: 20211110
  5. Covid 19 Vaccine [Concomitant]
     Indication: COVID-19 immunisation
     Dosage: FOURTH DOSE, ONE IN ONCE
     Route: 030
     Dates: start: 20220420, end: 20220420
  6. METHOTREXATE [Concomitant]
     Active Substance: METHOTREXATE
     Indication: Rheumatoid arthritis
     Route: 065
     Dates: start: 20220524, end: 20220608
  7. DOLOBID [Concomitant]
     Active Substance: DIFLUNISAL
     Indication: Pain
     Route: 065
  8. TYLENOL WITH CODEINE [Concomitant]
     Active Substance: ACETAMINOPHEN\CODEINE PHOSPHATE
     Indication: Pain
     Route: 065
  9. RINVOQ [Suspect]
     Active Substance: UPADACITINIB
     Indication: Product used for unknown indication
     Route: 048

REACTIONS (6)
  - Hip arthroplasty [Recovering/Resolving]
  - Procedural pain [Recovering/Resolving]
  - Exostosis [Recovered/Resolved]
  - Pain [Recovered/Resolved]
  - Drug hypersensitivity [Unknown]
  - Oral lichen planus [Unknown]

NARRATIVE: CASE EVENT DATE: 20220629
